FAERS Safety Report 4518174-0 (Version None)
Quarter: 2004Q4

REPORT INFORMATION
  Report Type: 
  Country: None (occurrence: None)
  Receive Date: 20041130
  Receipt Date: 20041122
  Transmission Date: 20050328
  Serious: Yes (Death)
  Sender: FDA-Public Use
  Company Number: 163-20785-04100425

PATIENT
  Age: 92 Year
  Sex: Female

DRUGS (2)
  1. THALOMID [Suspect]
     Indication: MULTIPLE MYELOMA
     Dosage: 250 MG, DAILY, ORAL
     Route: 048
     Dates: start: 20040701, end: 20040901
  2. THALOMID [Suspect]
     Indication: MULTIPLE MYELOMA
     Dosage: 250 MG, DAILY, ORAL
     Route: 048
     Dates: start: 20040701, end: 20040901

REACTIONS (1)
  - AORTIC ANEURYSM RUPTURE [None]
